FAERS Safety Report 6479640-4 (Version None)
Quarter: 2009Q4

REPORT INFORMATION
  Report Type: 
  Country: None (occurrence: None)
  Receive Date: 20091204
  Receipt Date: 20091204
  Transmission Date: 20100525
  Serious: Yes (Death)
  Sender: FDA-Public Use
  Company Number: None

PATIENT
  Age: 13 Year
  Sex: Male
  Weight: 47.95 kg

DRUGS (8)
  1. ETOPOSIDE [Suspect]
     Indication: NON-HODGKIN'S LYMPHOMA
     Dosage: 100 MG/M2, 1 DAY, INTRAVENOUS
     Route: 042
     Dates: start: 20090715, end: 20090719
  2. METHOTREXATE [Suspect]
     Indication: T-CELL LYMPHOMA
     Dosage: UNKNOWN, UNKNOWN, INTRATHECAL
     Route: 037
     Dates: start: 20090713, end: 20090713
  3. VINCRISTINE [Suspect]
     Indication: T-CELL LYMPHOMA
     Dates: start: 20090710, end: 20090710
  4. DEXAMETHASONE TAB [Suspect]
     Indication: T-CELL LYMPHOMA
     Route: 065
     Dates: start: 20090710, end: 20090710
  5. CYCLOPHOSPHAMIDE [Suspect]
     Indication: NON-HODGKIN'S LYMPHOMA
     Dosage: 300 MG/M2, 1 DAY, UNKNOWN
     Dates: start: 20090715, end: 20090719
  6. NELARABINE [Suspect]
     Indication: T-CELL LYMPHOMA
     Dosage: 910 MG, 1 DAY,
     Dates: start: 20090818, end: 20090819
  7. ERWINASE [Suspect]
     Indication: T-CELL LYMPHOMA
     Dosage: UNKNOWN, UNKNOWN, UNKNOWN
     Route: 065
     Dates: start: 20090730, end: 20090809
  8. CLOFARABINE [Suspect]
     Indication: NON-HODGKIN'S LYMPHOMA
     Dosage: 40 MG/M2, 1 DAY, INTRAVENOUS
     Route: 042
     Dates: start: 20090715, end: 20090719

REACTIONS (4)
  - MALIGNANT NEOPLASM PROGRESSION [None]
  - MEDIASTINAL DISORDER [None]
  - NON-HODGKIN'S LYMPHOMA STAGE III [None]
  - PLEURAL EFFUSION [None]
